FAERS Safety Report 15028660 (Version 2)
Quarter: 2018Q3

REPORT INFORMATION
  Report Type: Spontaneous
  Country: US (occurrence: US)
  Receive Date: 20180619
  Receipt Date: 20180718
  Transmission Date: 20181010
  Serious: No
  Sender: FDA-Public Use
  Company Number: US-HORIZON-PEN-0444-2018

PATIENT
  Age: 27 Year
  Sex: Female

DRUGS (1)
  1. PENNSAID [Suspect]
     Active Substance: DICLOFENAC SODIUM
     Indication: NERVE INJURY
     Dosage: 2 PUMPS TO AFFECTED AREA
     Dates: start: 20180516, end: 20180521

REACTIONS (2)
  - Off label use [Unknown]
  - Application site rash [Not Recovered/Not Resolved]
